FAERS Safety Report 6238948-8 (Version None)
Quarter: 2009Q2

REPORT INFORMATION
  Report Type: 
  Country: None (occurrence: None)
  Receive Date: 20090622
  Receipt Date: 20090612
  Transmission Date: 20091009
  Serious: Yes (Disabling)
  Sender: FDA-Public Use
  Company Number: B0578769A

PATIENT
  Age: 30 Year
  Sex: Female
  Weight: 105 kg

DRUGS (2)
  1. ORLISTAT [Suspect]
     Route: 048
     Dates: start: 20090429, end: 20090501
  2. OMEPRAZOLE [Concomitant]
     Route: 048
     Dates: start: 20000312

REACTIONS (1)
  - URTICARIA [None]
